FAERS Safety Report 17260983 (Version 4)
Quarter: 2020Q1

REPORT INFORMATION
  Report Type: Spontaneous
  Country: IE (occurrence: IE)
  Receive Date: 20200113
  Receipt Date: 20200306
  Transmission Date: 20200409
  Serious: Yes (Hospitalization)
  Sender: FDA-Public Use
  Company Number: IE-ROCHE-2514171

PATIENT
  Age: 50 Year
  Sex: Male

DRUGS (21)
  1. DULOXETINE. [Suspect]
     Active Substance: DULOXETINE
     Dosage: IN THE MORNING
     Route: 065
  2. CLONAZEPAM. [Suspect]
     Active Substance: CLONAZEPAM
     Dosage: 0.5 MG MANE AND 1 MG TARDE,
     Route: 048
  3. KETAMINE [Suspect]
     Active Substance: KETAMINE
     Route: 048
  4. METHADONE HYDROCHLORIDE. [Suspect]
     Active Substance: METHADONE HYDROCHLORIDE
     Indication: PAIN
     Route: 048
  5. METHADONE HYDROCHLORIDE. [Suspect]
     Active Substance: METHADONE HYDROCHLORIDE
     Route: 048
  6. METHADONE HYDROCHLORIDE. [Suspect]
     Active Substance: METHADONE HYDROCHLORIDE
     Route: 048
  7. OXYCODONE HYDROCHLORIDE. [Suspect]
     Active Substance: OXYCODONE HYDROCHLORIDE
     Route: 048
  8. PREGABALIN. [Suspect]
     Active Substance: PREGABALIN
     Indication: PAIN
     Route: 048
  9. DULOXETINE. [Suspect]
     Active Substance: DULOXETINE
     Indication: PAIN
     Dosage: 60MG IN THE MORNING, 30MG AT NIGHT
     Route: 065
  10. OXYCODONE HYDROCHLORIDE. [Suspect]
     Active Substance: OXYCODONE HYDROCHLORIDE
     Route: 048
  11. METHADONE HYDROCHLORIDE. [Suspect]
     Active Substance: METHADONE HYDROCHLORIDE
     Route: 048
  12. KETAMINE [Suspect]
     Active Substance: KETAMINE
     Route: 048
  13. KETAMINE [Suspect]
     Active Substance: KETAMINE
     Route: 065
  14. AMITRIPTYLINE [Suspect]
     Active Substance: AMITRIPTYLINE
     Dosage: 25 MG AT NIGHT
     Route: 065
  15. AMITRIPTYLINE [Suspect]
     Active Substance: AMITRIPTYLINE
     Dosage: 10 MG AT NIGHT
     Route: 065
  16. KETAMINE [Suspect]
     Active Substance: KETAMINE
     Indication: PAIN
     Dosage: TITRATED FROM 100 MG TO 500 MG/24 HOURS.
     Route: 058
  17. HALOPERIDOL. [Suspect]
     Active Substance: HALOPERIDOL
     Indication: HALLUCINATION
     Route: 048
  18. CLONAZEPAM. [Suspect]
     Active Substance: CLONAZEPAM
     Indication: PAIN
     Dosage: AT NIGHT
     Route: 048
  19. AMITRIPTYLINE [Suspect]
     Active Substance: AMITRIPTYLINE
     Indication: PAIN
     Dosage: AT NIGHT
     Route: 065
  20. DULOXETINE. [Suspect]
     Active Substance: DULOXETINE
     Dosage: 60 MG MANE, 30 MG TARDE
     Route: 065
  21. OXYCODONE HYDROCHLORIDE. [Suspect]
     Active Substance: OXYCODONE HYDROCHLORIDE
     Indication: PAIN
     Route: 048

REACTIONS (2)
  - Hallucination [Unknown]
  - Abnormal dreams [Unknown]
